FAERS Safety Report 7601720-8 (Version None)
Quarter: 2011Q2

REPORT INFORMATION
  Report Type: 
  Country: None (occurrence: None)
  Receive Date: 20110630
  Receipt Date: 20110624
  Transmission Date: 20111010
  Serious: Yes (Death, Hospitalization, Other)
  Sender: FDA-Public Use
  Company Number: 2010001452

PATIENT
  Age: 65 Year
  Sex: Male
  Weight: 60 kg

DRUGS (2)
  1. ERLOTINIB HYDROCHLORIDE [Suspect]
     Indication: NON-SMALL CELL LUNG CANCER
     Dosage: 150 MG, UID/QD, ORAL
     Route: 048
     Dates: start: 20100305, end: 20100309
  2. PAZOPANIB/PLACEBO [Suspect]
     Indication: NON-SMALL CELL LUNG CANCER
     Dosage: 600 MG, UID/QD, ORAL
     Route: 048
     Dates: start: 20100305, end: 20100309

REACTIONS (6)
  - DEHYDRATION [None]
  - PNEUMONIA [None]
  - ANAEMIA [None]
  - HYPOPHAGIA [None]
  - ASTHENIA [None]
  - MENTAL STATUS CHANGES [None]
